FAERS Safety Report 16726791 (Version 2)
Quarter: 2020Q3

REPORT INFORMATION
  Report Type: Spontaneous
  Country: CZ (occurrence: CZ)
  Receive Date: 20190821
  Receipt Date: 20200701
  Transmission Date: 20201102
  Serious: Yes (Other)
  Sender: FDA-Public Use
  Company Number: CZ-BAUSCH-BL-2019-023919

PATIENT
  Sex: Female

DRUGS (8)
  1. FLUOROURACIL. [Suspect]
     Active Substance: FLUOROURACIL
     Indication: ADENOCARCINOMA OF COLON
     Dosage: QCY (EVERY CYCLICAL)
     Route: 065
     Dates: start: 201711, end: 201711
  2. OXALIPLATIN. [Suspect]
     Active Substance: OXALIPLATIN
     Indication: ADENOCARCINOMA OF COLON
     Dosage: REDUCTION OF DOSE TO 75 PERCENT, 5 CYCLICAL
     Route: 065
     Dates: start: 201711, end: 201711
  3. VECTIBIX [Suspect]
     Active Substance: PANITUMUMAB
     Indication: ADENOCARCINOMA OF COLON
  4. FOLINIC ACID [Concomitant]
     Active Substance: LEUCOVORIN
     Indication: ADENOCARCINOMA OF COLON
     Dates: start: 201711
  5. FLUOROURACIL. [Suspect]
     Active Substance: FLUOROURACIL
     Indication: ADENOCARCINOMA OF COLON
     Dosage: REDUCTION OF DOSE TO 80 PERCENT
     Route: 065
     Dates: start: 201803, end: 201803
  6. OXALIPLATIN. [Suspect]
     Active Substance: OXALIPLATIN
     Indication: ADENOCARCINOMA OF COLON
     Dosage: 10 CYCLICAL
     Route: 065
     Dates: start: 201711, end: 201711
  7. VECTIBIX [Suspect]
     Active Substance: PANITUMUMAB
     Indication: ADENOCARCINOMA OF COLON
     Dosage: 1 CYCLICAL
     Route: 065
     Dates: start: 201711, end: 201711
  8. FOLINIC ACID [Concomitant]
     Active Substance: LEUCOVORIN
     Indication: ADENOCARCINOMA OF COLON

REACTIONS (5)
  - Anaemia [Recovered/Resolved]
  - Rash maculo-papular [Recovering/Resolving]
  - Hypomagnesaemia [Recovered/Resolved]
  - Neutropenia [Recovered/Resolved]
  - Paronychia [Recovered/Resolved]

NARRATIVE: CASE EVENT DATE: 201711
